FAERS Safety Report 8601842-9 (Version None)
Quarter: 2012Q3

REPORT INFORMATION
  Report Type: 
  Country: None (occurrence: None)
  Receive Date: 20120817
  Receipt Date: 20120501
  Transmission Date: 20120928
  Serious: No
  Sender: FDA-Public Use
  Company Number: US-BRISTOL-MYERS SQUIBB COMPANY-16563405

PATIENT
  Age: 73 Year
  Sex: Male
  Weight: 57 kg

DRUGS (1)
  1. SPRYCEL [Suspect]
     Indication: GASTROINTESTINAL STROMAL TUMOUR
     Dates: start: 20120401

REACTIONS (1)
  - NAUSEA [None]
